FAERS Safety Report 9760283 (Version 1)
Quarter: 2013Q4

REPORT INFORMATION
  Report Type: Spontaneous
  Country: None (occurrence: US)
  Receive Date: 20131216
  Receipt Date: 20131216
  Transmission Date: 20140711
  Serious: No
  Sender: FDA-Public Use
  Company Number: US-GILEAD-2010-0028923

PATIENT
  Sex: Female
  Weight: 78.92 kg

DRUGS (9)
  1. LETAIRIS [Suspect]
     Indication: PULMONARY ARTERIAL HYPERTENSION
     Route: 048
     Dates: start: 20100331
  2. POTASSIUM CHLORIDE [Concomitant]
  3. LASIX [Concomitant]
  4. METOPROLOL [Concomitant]
  5. FAMOTIDINE [Concomitant]
  6. NIFEDIPINE ER [Concomitant]
  7. LEVOXYL [Concomitant]
  8. PLAVIX [Concomitant]
  9. ASPIRIN [Concomitant]

REACTIONS (1)
  - Oedema peripheral [Unknown]
